FAERS Safety Report 16333519 (Version 1)
Quarter: 2019Q2

REPORT INFORMATION
  Report Type: Spontaneous
  Country: LT (occurrence: LT)
  Receive Date: 20190520
  Receipt Date: 20190520
  Transmission Date: 20190711
  Serious: Yes (Hospitalization)
  Sender: FDA-Public Use
  Company Number: LT-OTSUKA-2019_006791AA

PATIENT
  Age: 27 Year
  Sex: Female

DRUGS (4)
  1. LORAZEPAM. [Concomitant]
     Active Substance: LORAZEPAM
     Indication: PSYCHOTIC DISORDER
     Dosage: 2.5 MG, QD
     Route: 065
  2. ARIPIPRAZOLE. [Suspect]
     Active Substance: ARIPIPRAZOLE
     Indication: HYPERPROLACTINAEMIA
  3. ARIPIPRAZOLE. [Suspect]
     Active Substance: ARIPIPRAZOLE
     Indication: PSYCHOTIC DISORDER
     Dosage: 15 MG, QD
     Route: 065
  4. HALOPERIDOL. [Concomitant]
     Active Substance: HALOPERIDOL
     Indication: PSYCHOTIC DISORDER
     Dosage: 7.5 MG, QD
     Route: 030

REACTIONS (9)
  - Product use in unapproved indication [Unknown]
  - Anxiety [Recovering/Resolving]
  - Delusion [Unknown]
  - Condition aggravated [Unknown]
  - Stereotypy [Recovering/Resolving]
  - Acute psychosis [Unknown]
  - Thinking abnormal [Unknown]
  - Extrapyramidal disorder [Recovered/Resolved]
  - Behaviour disorder [Unknown]
